FAERS Safety Report 6543168-3 (Version None)
Quarter: 2010Q1

REPORT INFORMATION
  Report Type: 
  Country: None (occurrence: None)
  Receive Date: 20100120
  Receipt Date: 20100113
  Transmission Date: 20100710
  Serious: Yes (Other)
  Sender: FDA-Public Use
  Company Number: CHPA2010US01081

PATIENT
  Age: 61 Year
  Sex: Male
  Weight: 116.1 kg

DRUGS (2)
  1. TRIAMINIC FLOWING VAPOURS REFILL PAD (NCH) [Suspect]
     Indication: DYSPNOEA
     Dosage: UNK,UNK
     Route: 045
     Dates: start: 20100108, end: 20100108
  2. TRIAMINIC FLOWING VAPOURS REFILL PAD (NCH) [Suspect]
     Indication: NASOPHARYNGITIS

REACTIONS (2)
  - ACTIVITIES OF DAILY LIVING IMPAIRED [None]
  - DIPLOPIA [None]
